FAERS Safety Report 4825883-2 (Version None)
Quarter: 2005Q4

REPORT INFORMATION
  Report Type: 
  Country: None (occurrence: None)
  Receive Date: 20051109
  Receipt Date: 20051102
  Transmission Date: 20060501
  Serious: Yes (Hospitalization, Other)
  Sender: FDA-Public Use
  Company Number: 200513638BCC

PATIENT
  Age: 77 Year
  Sex: Female
  Weight: 79.8331 kg

DRUGS (18)
  1. ASPIRIN [Suspect]
     Indication: CARDIOVASCULAR EVENT PROPHYLAXIS
     Dosage: 81 MG, QD, ORAL
     Route: 048
     Dates: start: 20050726, end: 20050820
  2. ASPIRIN [Suspect]
     Indication: CARDIOVASCULAR EVENT PROPHYLAXIS
     Dosage: 81 MG, QD, ORAL
     Route: 048
     Dates: start: 20050821
  3. PHILLIP'S MILK OF MAGNESIA CHERRY LIQUID  (MILK OF MAGNESIA) [Suspect]
     Indication: CONSTIPATION
     Dosage: 60 ML, IRR, ORAL
     Route: 048
     Dates: start: 20050101, end: 20050906
  4. SHACKLEY VITAMIN C [Concomitant]
  5. VITAMIN E [Concomitant]
  6. CENTRUM SILVER [Concomitant]
  7. CALTRATE [Concomitant]
  8. SANCTURA [Concomitant]
  9. CEPHALEXIN [Concomitant]
  10. PRILOSEC [Concomitant]
  11. PREDNISONE [Concomitant]
  12. ENALAPRIL [Concomitant]
  13. COREG [Concomitant]
  14. BENICAR HCT [Concomitant]
  15. LORAZEPAM [Concomitant]
  16. CLONIDINE [Concomitant]
  17. CELEXA [Concomitant]
  18. TRAZODONE [Concomitant]

REACTIONS (6)
  - ABDOMINAL PAIN UPPER [None]
  - BLOOD PRESSURE INCREASED [None]
  - CONDITION AGGRAVATED [None]
  - FAECALOMA [None]
  - HAEMATOCHEZIA [None]
  - MUSCLE SPASMS [None]
